FAERS Safety Report 9847077 (Version 1)
Quarter: 2014Q1

REPORT INFORMATION
  Report Type: Spontaneous
  Country: DE (occurrence: DE)
  Receive Date: 20140127
  Receipt Date: 20140127
  Transmission Date: 20141002
  Serious: Yes (Hospitalization)
  Sender: FDA-Public Use
  Company Number: DE-PFIZER INC-2014023074

PATIENT
  Age: 71 Year
  Sex: Female

DRUGS (5)
  1. AMIODARONE HCL [Suspect]
     Indication: ARRHYTHMIA
     Dosage: 1 DF, DAILY
     Route: 065
  2. PRADAXA [Suspect]
     Indication: ARRHYTHMIA
     Dosage: UNK
     Route: 065
  3. METOPROLOL [Concomitant]
     Indication: HYPERTENSION
     Dosage: UNK
  4. RAMIPRIL [Concomitant]
     Indication: HYPERTENSION
     Dosage: UNK
  5. MOXONIDINE [Concomitant]
     Indication: HYPERTENSION
     Dosage: UNK

REACTIONS (2)
  - Atrial thrombosis [Unknown]
  - International normalised ratio increased [Unknown]
